FAERS Safety Report 23030273 (Version 1)
Quarter: 2023Q4

REPORT INFORMATION
  Report Type: Other
  Country: US (occurrence: None)
  Receive Date: 20231005
  Receipt Date: 20231005
  Transmission Date: 20240109
  Serious: Yes (Hospitalization)
  Sender: FDA-Public Use
  Company Number: US-ROCHE-3429453

PATIENT
  Age: 48 Year
  Sex: Female
  Weight: 70.37 kg

DRUGS (8)
  1. OCREVUS [Suspect]
     Active Substance: OCRELIZUMAB
     Indication: Relapsing-remitting multiple sclerosis
     Dosage: THEN 600 MG EVERY 6 MONTHS, DATE OF TREATMENT: 15/JUN/2023, 27/APR/2020, 04/NOV/219, 02/MAY/2019, 25
     Route: 042
  2. ERGOCALCIFEROL [Concomitant]
     Active Substance: ERGOCALCIFEROL
     Dosage: ORAL TABLET ONCE A DAY 2000 UNITS ;ONGOING: YES
     Dates: start: 2001
  3. LEXAPRO [Concomitant]
     Active Substance: ESCITALOPRAM OXALATE
     Indication: Depression
     Dosage: ORAL TABLET 10 MG ONCE A DAY
     Dates: start: 2001
  4. LEXAPRO [Concomitant]
     Active Substance: ESCITALOPRAM OXALATE
     Indication: Anxiety
  5. MODAFINIL [Concomitant]
     Active Substance: MODAFINIL
     Indication: Fatigue
     Dosage: ORAL TABLET 300 MG ONCE A DAY
  6. TYSABRI [Concomitant]
     Active Substance: NATALIZUMAB
  7. TECFIDERA [Concomitant]
     Active Substance: DIMETHYL FUMARATE
  8. REBIF [Concomitant]
     Active Substance: INTERFERON BETA-1A

REACTIONS (2)
  - Appendicitis perforated [Recovered/Resolved]
  - Multiple sclerosis [Unknown]

NARRATIVE: CASE EVENT DATE: 20230301
